FAERS Safety Report 10206340 (Version 2)
Quarter: 2014Q2

REPORT INFORMATION
  Report Type: Report from Study
  Country: JP (occurrence: JP)
  Receive Date: 20140530
  Receipt Date: 20140624
  Transmission Date: 20141212
  Serious: Yes (Death, Other)
  Sender: FDA-Public Use
  Company Number: PHHY2014JP065808

PATIENT
  Age: 48 Year
  Sex: Male
  Weight: 55 kg

DRUGS (9)
  1. CERTICAN [Suspect]
     Indication: PROPHYLAXIS AGAINST TRANSPLANT REJECTION
     Dosage: 1.5 MG, DAILY
     Route: 048
     Dates: start: 20111001, end: 20111009
  2. CERTICAN [Suspect]
     Dosage: 2 MG, DAILY
     Route: 048
     Dates: start: 20111010
  3. PROGRAF [Concomitant]
     Indication: HEART TRANSPLANT
     Dosage: 19 MG, UNK
     Route: 048
     Dates: start: 20110830
  4. PROGRAF [Concomitant]
     Dosage: 16 MG, UNK
     Route: 048
  5. PROGRAF [Concomitant]
     Dosage: 18 MG, UNK
     Route: 048
  6. PROGRAF [Concomitant]
     Dosage: 16 MG, UNK
     Route: 048
  7. PROGRAF [Concomitant]
     Dosage: 15 MG, UNK
     Route: 048
  8. RENIVACE [Concomitant]
     Route: 048
     Dates: start: 20110705
  9. LIPITOR [Concomitant]
     Dosage: 5 MG, UNK
     Route: 048
     Dates: start: 20110801

REACTIONS (5)
  - Sudden death [Fatal]
  - Cardiac arrest [Unknown]
  - Cardio-respiratory arrest [Unknown]
  - Glycosylated haemoglobin increased [Unknown]
  - Blood alkaline phosphatase increased [Unknown]
